FAERS Safety Report 21095002 (Version 1)
Quarter: 2022Q3

REPORT INFORMATION
  Report Type: Spontaneous
  Country: US (occurrence: None)
  Receive Date: 20220715
  Receipt Date: 20220715
  Transmission Date: 20221027
  Serious: Yes (Other)
  Sender: FDA-Public Use
  Company Number: None

PATIENT
  Age: 28 Year
  Sex: Female
  Weight: 71.1 kg

DRUGS (2)
  1. SUBOXONE [Suspect]
     Active Substance: BUPRENORPHINE HYDROCHLORIDE\NALOXONE HYDROCHLORIDE
     Indication: Dependence
     Dosage: OTHER QUANTITY : 60 60;?FREQUENCY : TWICE A DAY;?
     Route: 060
     Dates: start: 20170501
  2. SUBOXONE [Concomitant]
     Active Substance: BUPRENORPHINE HYDROCHLORIDE\NALOXONE HYDROCHLORIDE

REACTIONS (5)
  - Dental caries [None]
  - Tooth loss [None]
  - Tooth erosion [None]
  - Product use complaint [None]
  - Product communication issue [None]

NARRATIVE: CASE EVENT DATE: 20170501
